FAERS Safety Report 20866105 (Version 1)
Quarter: 2022Q2

REPORT INFORMATION
  Report Type: Spontaneous
  Country: US (occurrence: None)
  Receive Date: 20220523
  Receipt Date: 20220523
  Transmission Date: 20220721
  Serious: Yes (Life-Threatening)
  Sender: FDA-Public Use
  Company Number: None

PATIENT
  Age: 72 Year
  Sex: Male
  Weight: 75 kg

DRUGS (1)
  1. WARFARIN SODIUM [Suspect]
     Active Substance: WARFARIN SODIUM
     Indication: Pulmonary embolism
     Route: 048
     Dates: start: 20210913

REACTIONS (4)
  - Chest pain [None]
  - Dyspnoea [None]
  - Pulmonary embolism [None]
  - International normalised ratio abnormal [None]

NARRATIVE: CASE EVENT DATE: 20210916
